FAERS Safety Report 22112835 (Version 10)
Quarter: 2023Q4

REPORT INFORMATION
  Report Type: Report from Study
  Country: US (occurrence: US)
  Receive Date: 20230320
  Receipt Date: 20231205
  Transmission Date: 20240110
  Serious: No
  Sender: FDA-Public Use
  Company Number: US-002147023-NVSC2023US057646

PATIENT
  Age: 66 Year
  Sex: Female

DRUGS (10)
  1. KESIMPTA [Suspect]
     Active Substance: OFATUMUMAB
     Indication: Relapsing multiple sclerosis
     Dosage: 20 MG, QMO
     Route: 058
     Dates: start: 20230227
  2. KESIMPTA [Suspect]
     Active Substance: OFATUMUMAB
     Indication: Multiple sclerosis
  3. DALFAMPRIDINE [Concomitant]
     Active Substance: DALFAMPRIDINE
     Indication: Product used for unknown indication
     Dosage: UNK, DALFAMPRIDINE ER,
     Route: 065
  4. AMLODIPINE BESYLATE [Concomitant]
     Active Substance: AMLODIPINE BESYLATE
     Indication: Product used for unknown indication
     Dosage: 5 MG, QD
     Route: 065
  5. BACLOFEN [Concomitant]
     Active Substance: BACLOFEN
     Indication: Product used for unknown indication
     Dosage: 5 MG, TID
     Route: 065
  6. NICOTINIC ACID [Concomitant]
     Active Substance: NIACIN
     Indication: Product used for unknown indication
     Dosage: 1000 IU, QW
     Route: 065
  7. DOCUSATE SODIUM [Concomitant]
     Active Substance: DOCUSATE SODIUM
     Indication: Product used for unknown indication
     Dosage: 100 MG, BID
     Route: 065
  8. GABAPENTIN [Concomitant]
     Active Substance: GABAPENTIN
     Indication: Product used for unknown indication
     Dosage: 600 MG, TID
     Route: 065
  9. LEVEMIR [Concomitant]
     Active Substance: INSULIN DETEMIR
     Indication: Product used for unknown indication
     Dosage: 1 DOSAGE FORM, BID
     Route: 065
  10. LIDOCAINE [Concomitant]
     Active Substance: LIDOCAINE
     Indication: Product used for unknown indication
     Dosage: 5%, QD, LIDOCAINE PATCH
     Route: 065

REACTIONS (15)
  - Influenza like illness [Unknown]
  - Chills [Unknown]
  - Bruxism [Unknown]
  - Headache [Unknown]
  - Pain [Unknown]
  - Pain in extremity [Unknown]
  - Contusion [Unknown]
  - Fear [Unknown]
  - Dizziness [Unknown]
  - Gait disturbance [Unknown]
  - Balance disorder [Unknown]
  - Injection site pain [Unknown]
  - Needle issue [Unknown]
  - Drug dose omission by device [Unknown]
  - Wrong device used [Unknown]

NARRATIVE: CASE EVENT DATE: 20230310
